FAERS Safety Report 8694450 (Version 4)
Quarter: 2012Q4

REPORT INFORMATION
  Report Type: 
  Country: US (occurrence: US)
  Receive Date: 20120731
  Receipt Date: 20121203
  Transmission Date: 20130627
  Serious: Yes (Death, Hospitalization, Other)
  Sender: FDA-Public Use
  Company Number: US-CELGENEUS-163-21880-12072833

PATIENT
  Age: 53 None
  Sex: Male

DRUGS (9)
  1. REVLIMID [Suspect]
     Indication: MULTIPLE MYELOMA
     Dosage: 25 Milligram
     Route: 048
     Dates: start: 201108, end: 2011
  2. REVLIMID [Suspect]
     Dosage: 25 Milligram
     Route: 048
     Dates: start: 201206, end: 20120628
  3. PACKED CELLS TRANSFUSION [Concomitant]
     Indication: DRUG USE FOR UNKNOWN INDICATION
     Dosage: 1 Unit
     Route: 041
     Dates: start: 2012
  4. ATIVAN [Concomitant]
     Indication: PAIN MANAGEMENT
     Dosage: 1 Milligram
     Route: 041
     Dates: start: 2012
  5. ATIVAN [Concomitant]
     Indication: RESTLESSNESS
  6. DILAUDID [Concomitant]
     Indication: ANALGESIA
     Dosage: .5 Milligram/Milliliters
     Route: 065
     Dates: start: 2012
  7. OXYGEN [Concomitant]
     Indication: DRUG USE FOR UNKNOWN INDICATION
     Route: 065
     Dates: start: 2012
  8. DURAGESIC [Concomitant]
     Indication: PAIN MANAGEMENT
     Dosage: 25 Microgram
     Route: 065
     Dates: start: 2012
  9. DECADRON [Concomitant]
     Indication: MULTIPLE MYELOMA
     Dosage: 20 Milligram
     Route: 065
     Dates: start: 2012

REACTIONS (5)
  - Plasma cell myeloma [Fatal]
  - Renal failure acute [Fatal]
  - Gastrointestinal haemorrhage [Unknown]
  - Pancytopenia [Unknown]
  - Blood glucose increased [Unknown]
